FAERS Safety Report 6257981-3 (Version None)
Quarter: 2009Q3

REPORT INFORMATION
  Report Type: 
  Country: None (occurrence: None)
  Receive Date: 20090707
  Receipt Date: 20090624
  Transmission Date: 20100115
  Serious: Yes (Hospitalization)
  Sender: FDA-Public Use
  Company Number: IT-ELI_LILLY_AND_COMPANY-IT200906005833

PATIENT
  Sex: Male
  Weight: 102 kg

DRUGS (5)
  1. PEMETREXED [Suspect]
     Indication: HEAD AND NECK CANCER
     Dosage: 500 MG/M2, UNK
     Dates: start: 20090410
  2. CISPLATIN [Suspect]
     Indication: HEAD AND NECK CANCER
     Dosage: 75 MG/M2, ON DAY ONE EVERY 21 DAYS
     Dates: start: 20090410
  3. FOLIC ACID [Concomitant]
     Indication: SUPPLEMENTATION THERAPY
     Dosage: 400 UG, DAILY (1/D)
     Route: 048
     Dates: start: 20090401
  4. VITAMIN B-12 [Concomitant]
     Indication: SUPPLEMENTATION THERAPY
     Dosage: 1000 UG, EVERY 9 WEEKS
     Dates: start: 20090403
  5. DEXAMETHASONE [Concomitant]
     Dosage: 4 MG, 2/D
     Route: 048
     Dates: start: 20090410

REACTIONS (3)
  - DIZZINESS [None]
  - LEUKOPENIA [None]
  - NEUTROPENIA [None]
